FAERS Safety Report 21240953 (Version 1)
Quarter: 2022Q3

REPORT INFORMATION
  Report Type: Spontaneous
  Country: US (occurrence: None)
  Receive Date: 20220822
  Receipt Date: 20220822
  Transmission Date: 20221027
  Serious: Yes (Hospitalization)
  Sender: FDA-Public Use
  Company Number: None

PATIENT
  Age: 51 Year
  Sex: Female
  Weight: 97 kg

DRUGS (1)
  1. BEBTELOVIMAB [Suspect]
     Active Substance: BEBTELOVIMAB
     Indication: COVID-19
     Dosage: 175 MG
     Dates: start: 20220817

REACTIONS (5)
  - Nausea [None]
  - Dyspepsia [None]
  - Feeling abnormal [None]
  - Blood pressure increased [None]
  - Drug ineffective [None]

NARRATIVE: CASE EVENT DATE: 20220817
